FAERS Safety Report 8506655-4 (Version None)
Quarter: 2012Q3

REPORT INFORMATION
  Report Type: 
  Country: None (occurrence: None)
  Receive Date: 20120703
  Receipt Date: 20120618
  Transmission Date: 20120928
  Serious: Yes (Other)
  Sender: FDA-Public Use
  Company Number: 2012SA044754

PATIENT
  Sex: Female

DRUGS (2)
  1. MENTHOL / UNKNOWN / UNKNOWN [Suspect]
     Indication: OEDEMA PERIPHERAL
     Dosage: UNKNOWN, TOPICAL
     Route: 061
  2. ABSORBINE JR [Concomitant]

REACTIONS (2)
  - APPLICATION SITE BURN [None]
  - APPLICATION SITE ERYTHEMA [None]
